FAERS Safety Report 21532195 (Version 1)
Quarter: 2022Q4

REPORT INFORMATION
  Report Type: Report from Study
  Country: PR (occurrence: PR)
  Receive Date: 20221101
  Receipt Date: 20221101
  Transmission Date: 20230113
  Serious: Yes (Other)
  Sender: FDA-Public Use
  Company Number: PR-ABBVIE-21K-131-3992581-00

PATIENT
  Age: 69 Year
  Sex: Female
  Weight: 63 kg

DRUGS (21)
  1. HUMIRA [Suspect]
     Active Substance: ADALIMUMAB
     Indication: Rheumatoid arthritis
     Route: 058
     Dates: start: 2010, end: 202001
  2. HUMIRA [Suspect]
     Active Substance: ADALIMUMAB
     Route: 058
     Dates: start: 202001
  3. HUMIRA [Suspect]
     Active Substance: ADALIMUMAB
     Route: 058
  4. HUMIRA [Suspect]
     Active Substance: ADALIMUMAB
     Route: 058
  5. METHOTREXATE [Concomitant]
     Active Substance: METHOTREXATE
     Indication: Rheumatoid arthritis
     Dosage: STRENGTH: 2.5 MG
     Route: 048
     Dates: start: 2012
  6. RELAFEN [Concomitant]
     Active Substance: NABUMETONE
     Indication: Pain
     Dosage: STRENGTH: 750 MG
     Route: 048
     Dates: start: 202106
  7. PLAVIX [Concomitant]
     Active Substance: CLOPIDOGREL BISULFATE
     Indication: Anticoagulant therapy
     Dosage: START DATE 10 TO 11 YEARS AGO. ?STRENGTH: 75 MG
     Route: 048
  8. ATORVASTATIN [Concomitant]
     Active Substance: ATORVASTATIN
     Indication: Blood cholesterol
     Dosage: STRENGTH 40 MG
     Route: 048
     Dates: start: 2010
  9. ATORVASTATIN [Concomitant]
     Active Substance: ATORVASTATIN
     Indication: Blood cholesterol
     Dosage: STRENGTH 40 MG
     Route: 048
     Dates: start: 2015
  10. LOSARTAN [Concomitant]
     Active Substance: LOSARTAN
     Indication: Hypertension
     Dosage: STRENGTH: 100 MG.?START DATE: 6 TO 7 YEARS AGO
     Route: 048
  11. PROPRANOLOL [Concomitant]
     Active Substance: PROPRANOLOL HYDROCHLORIDE
     Indication: Product used for unknown indication
     Route: 048
  12. HYDROCHLOROTHIAZIDE [Concomitant]
     Active Substance: HYDROCHLOROTHIAZIDE
     Indication: Diuretic therapy
     Dosage: STRENGTH: 25 MG
     Route: 048
     Dates: start: 2019
  13. FOLIC ACID [Concomitant]
     Active Substance: FOLIC ACID
     Indication: Haemoglobin
     Dosage: STRENGTH: 1 MG
     Route: 048
     Dates: start: 2014
  14. NORVASC [Concomitant]
     Active Substance: AMLODIPINE BESYLATE
     Indication: Hypertension
     Dosage: STRENGTH 2.5 MG
     Route: 048
     Dates: start: 2016
  15. NORVASC [Concomitant]
     Active Substance: AMLODIPINE BESYLATE
     Indication: Hypertension
     Dosage: STRENGTH 2.5 MG
     Route: 048
     Dates: start: 2018
  16. METFORMIN [Concomitant]
     Active Substance: METFORMIN HYDROCHLORIDE
     Indication: Diabetes mellitus
     Dosage: STRENGTH: 500 MG
     Route: 048
     Dates: start: 2017
  17. TOZINAMERAN [Concomitant]
     Active Substance: TOZINAMERAN
     Indication: COVID-19 immunisation
     Dosage: 1 IN ONCE.?1ST DOSE
     Route: 030
     Dates: start: 20210114, end: 20210114
  18. TOZINAMERAN [Concomitant]
     Active Substance: TOZINAMERAN
     Indication: COVID-19 immunisation
     Dosage: 1 IN ONCE.?3RD DOSE
     Route: 030
     Dates: start: 20210920, end: 20210920
  19. TOZINAMERAN [Concomitant]
     Active Substance: TOZINAMERAN
     Indication: COVID-19 immunisation
     Dosage: 1 IN ONCE.?4TH DOSE
     Route: 030
     Dates: start: 20221011, end: 20221011
  20. TOZINAMERAN [Concomitant]
     Active Substance: TOZINAMERAN
     Indication: COVID-19 immunisation
     Dosage: 1 IN ONCE.?2ND DOSE
     Route: 030
     Dates: start: 20210204, end: 20210204
  21. ANTIVERT [Concomitant]
     Active Substance: MECLIZINE HYDROCHLORIDE
     Indication: Dizziness
     Route: 048
     Dates: start: 202204

REACTIONS (5)
  - Cataract [Not Recovered/Not Resolved]
  - Dizziness [Recovering/Resolving]
  - Fall [Recovering/Resolving]
  - Pain [Recovering/Resolving]
  - Memory impairment [Not Recovered/Not Resolved]

NARRATIVE: CASE EVENT DATE: 20190101
